FAERS Safety Report 23210803 (Version 1)
Quarter: 2023Q4

REPORT INFORMATION
  Report Type: Spontaneous
  Country: FI (occurrence: FI)
  Receive Date: 20231121
  Receipt Date: 20231121
  Transmission Date: 20240110
  Serious: No
  Sender: FDA-Public Use
  Company Number: FI-JNJFOC-20231144443

PATIENT
  Age: 27 Year
  Sex: Male

DRUGS (1)
  1. CONCERTA [Suspect]
     Active Substance: METHYLPHENIDATE HYDROCHLORIDE
     Indication: Attention deficit hyperactivity disorder
     Dosage: 36 MG IN THE MORNING, 18 MG IN THE AFTERNOON
     Route: 048

REACTIONS (3)
  - Painful erection [Unknown]
  - Heart rate increased [Unknown]
  - Blood pressure diastolic increased [Unknown]
